FAERS Safety Report 7913513-2 (Version None)
Quarter: 2011Q4

REPORT INFORMATION
  Report Type: 
  Country: None (occurrence: None)
  Receive Date: 20111110
  Receipt Date: 20111027
  Transmission Date: 20120403
  Serious: Yes (Death, Hospitalization, Congenital Anomaly)
  Sender: FDA-Public Use
  Company Number: 1000025243

PATIENT
  Sex: Female
  Weight: 3.05 kg

DRUGS (1)
  1. CITALOPRAM HYDROBROMIDE [Suspect]
     Dosage: 20 MG (20 MG, 1 IN 1 D),TRANSPLACENTAL
     Route: 064
     Dates: start: 20100110, end: 20101012

REACTIONS (11)
  - MATERNAL DRUGS AFFECTING FOETUS [None]
  - MULTI-ORGAN DISORDER [None]
  - POSTMATURE BABY [None]
  - PETECHIAE [None]
  - HYPERAEMIA [None]
  - INTRA-UTERINE DEATH [None]
  - CARDIOVASCULAR INSUFFICIENCY [None]
  - PLACENTAL DISORDER [None]
  - ASPHYXIA [None]
  - EBSTEIN'S ANOMALY [None]
  - HAEMORRHAGE [None]
